FAERS Safety Report 9485719 (Version 1)
Quarter: 2013Q3

REPORT INFORMATION
  Report Type: Spontaneous
  Country: US (occurrence: None)
  Receive Date: 20130827
  Receipt Date: 20130827
  Transmission Date: 20140515
  Serious: No
  Sender: FDA-Public Use
  Company Number: None

PATIENT
  Age: 56 Year
  Sex: Female
  Weight: 50 kg

DRUGS (9)
  1. DESFLURANE [Suspect]
     Indication: INDUCTION OF ANAESTHESIA
     Route: 007
     Dates: start: 20130529
  2. CLONIDINE [Suspect]
     Indication: HYPERTENSION
     Route: 048
     Dates: start: 20130529
  3. EFFEXOR [Concomitant]
  4. HYDROCHLOROTHIAZIDE [Concomitant]
  5. LORAZEPAM [Concomitant]
  6. MELATONIN [Concomitant]
  7. METOPROLOL [Concomitant]
  8. TRAZODONE [Concomitant]
  9. MORPHINE [Concomitant]

REACTIONS (3)
  - Malignant hypertension [None]
  - Mental status changes [None]
  - Mydriasis [None]
